FAERS Safety Report 7307323-7 (Version None)
Quarter: 2011Q1

REPORT INFORMATION
  Report Type: 
  Country: None (occurrence: None)
  Receive Date: 20110209
  Receipt Date: 20110124
  Transmission Date: 20110831
  Serious: Yes (Hospitalization, Disabling, Other)
  Sender: FDA-Public Use
  Company Number: ALA_01470_2011

PATIENT
  Sex: Female
  Weight: 59.8748 kg

DRUGS (68)
  1. ELAVIL [Concomitant]
  2. BENTYL [Concomitant]
  3. PLETAL [Concomitant]
  4. DIVALPROEX [Concomitant]
  5. BENADRYL [Concomitant]
  6. PHENERGAN HCL [Concomitant]
  7. PERCOCET-5 [Concomitant]
  8. MIRALAX [Concomitant]
  9. BENTYL [Concomitant]
  10. PRAVACHOL [Concomitant]
  11. METRONIDAZOLE [Concomitant]
  12. ANTIPSYCHOTIC MEDICATION [Concomitant]
  13. IMITREX [Concomitant]
  14. LISINOPRIL [Concomitant]
  15. HYDROCORTISONE [Concomitant]
  16. HYDROCODONE BITARTRATE AND ACETAMINOPHEN [Concomitant]
  17. DILAUDID [Concomitant]
  18. PERPHENAZINE [Concomitant]
  19. SLEEP MEDICATION [Concomitant]
  20. DEPAKOTE ER [Concomitant]
  21. PANTOPRAZOLE [Concomitant]
  22. NASACORT AQ [Concomitant]
  23. HYDROXYZINE [Concomitant]
  24. KLOR-CON [Concomitant]
  25. PERIACTIN [Concomitant]
  26. ATTENTION DEFICIT MEDICATION [Concomitant]
  27. LIDODERM [Concomitant]
  28. CARAFATE [Concomitant]
  29. SOMA [Concomitant]
  30. FLEXERIL [Concomitant]
  31. COREG [Concomitant]
  32. NASAREL /00456601/ [Concomitant]
  33. TRAMADOL HCL [Concomitant]
  34. ALBUTEROL [Concomitant]
  35. LISINOPRIL AND HYDROCHLOROTHIAZIDE [Concomitant]
  36. RELPAX [Concomitant]
  37. ZOLOFT [Concomitant]
  38. UNSPECIFIED HERBAL [Concomitant]
  39. TRAZODONE [Concomitant]
  40. ANUSOL HC [Concomitant]
  41. CRESTOR [Concomitant]
  42. MORPHINE SULFATE [Concomitant]
  43. BIAXIN [Concomitant]
  44. LASIX [Concomitant]
  45. EFFEXOR [Concomitant]
  46. REGLAN [Suspect]
     Indication: GASTROOESOPHAGEAL REFLUX DISEASE
     Dosage: (10MG ORAL), (10 MG BID, 10 MG ORAL), (INTRAVENOUS), (10 MG, 10MG THREE TIMES A DAY AS NEEDED ORAL)
     Dates: start: 20080101
  47. REGLAN [Suspect]
     Indication: NAUSEA
     Dosage: (10MG ORAL), (10 MG BID, 10 MG ORAL), (INTRAVENOUS), (10 MG, 10MG THREE TIMES A DAY AS NEEDED ORAL)
     Dates: start: 20080101
  48. REGLAN [Suspect]
     Indication: ABDOMINAL DISTENSION
     Dosage: (10MG ORAL), (10 MG BID, 10 MG ORAL), (INTRAVENOUS), (10 MG, 10MG THREE TIMES A DAY AS NEEDED ORAL)
     Dates: start: 20080101
  49. REGLAN [Suspect]
     Indication: GASTROOESOPHAGEAL REFLUX DISEASE
     Dosage: (10MG ORAL), (10 MG BID, 10 MG ORAL), (INTRAVENOUS), (10 MG, 10MG THREE TIMES A DAY AS NEEDED ORAL)
     Dates: start: 20070712, end: 20070712
  50. REGLAN [Suspect]
     Indication: NAUSEA
     Dosage: (10MG ORAL), (10 MG BID, 10 MG ORAL), (INTRAVENOUS), (10 MG, 10MG THREE TIMES A DAY AS NEEDED ORAL)
     Dates: start: 20070712, end: 20070712
  51. REGLAN [Suspect]
     Indication: ABDOMINAL DISTENSION
     Dosage: (10MG ORAL), (10 MG BID, 10 MG ORAL), (INTRAVENOUS), (10 MG, 10MG THREE TIMES A DAY AS NEEDED ORAL)
     Dates: start: 20070712, end: 20070712
  52. REGLAN [Suspect]
     Indication: GASTROOESOPHAGEAL REFLUX DISEASE
     Dosage: (10MG ORAL), (10 MG BID, 10 MG ORAL), (INTRAVENOUS), (10 MG, 10MG THREE TIMES A DAY AS NEEDED ORAL)
     Dates: start: 20090901, end: 20100201
  53. REGLAN [Suspect]
     Indication: NAUSEA
     Dosage: (10MG ORAL), (10 MG BID, 10 MG ORAL), (INTRAVENOUS), (10 MG, 10MG THREE TIMES A DAY AS NEEDED ORAL)
     Dates: start: 20090901, end: 20100201
  54. REGLAN [Suspect]
     Indication: ABDOMINAL DISTENSION
     Dosage: (10MG ORAL), (10 MG BID, 10 MG ORAL), (INTRAVENOUS), (10 MG, 10MG THREE TIMES A DAY AS NEEDED ORAL)
     Dates: start: 20090901, end: 20100201
  55. REGLAN [Suspect]
     Indication: GASTROOESOPHAGEAL REFLUX DISEASE
     Dosage: (10MG ORAL), (10 MG BID, 10 MG ORAL), (INTRAVENOUS), (10 MG, 10MG THREE TIMES A DAY AS NEEDED ORAL)
     Dates: start: 20070712
  56. REGLAN [Suspect]
     Indication: NAUSEA
     Dosage: (10MG ORAL), (10 MG BID, 10 MG ORAL), (INTRAVENOUS), (10 MG, 10MG THREE TIMES A DAY AS NEEDED ORAL)
     Dates: start: 20070712
  57. REGLAN [Suspect]
     Indication: ABDOMINAL DISTENSION
     Dosage: (10MG ORAL), (10 MG BID, 10 MG ORAL), (INTRAVENOUS), (10 MG, 10MG THREE TIMES A DAY AS NEEDED ORAL)
     Dates: start: 20070712
  58. REGLAN [Suspect]
     Indication: GASTROOESOPHAGEAL REFLUX DISEASE
     Dosage: (10MG ORAL), (10 MG BID, 10 MG ORAL), (INTRAVENOUS), (10 MG, 10MG THREE TIMES A DAY AS NEEDED ORAL)
     Dates: start: 20070101
  59. REGLAN [Suspect]
     Indication: NAUSEA
     Dosage: (10MG ORAL), (10 MG BID, 10 MG ORAL), (INTRAVENOUS), (10 MG, 10MG THREE TIMES A DAY AS NEEDED ORAL)
     Dates: start: 20070101
  60. REGLAN [Suspect]
     Indication: ABDOMINAL DISTENSION
     Dosage: (10MG ORAL), (10 MG BID, 10 MG ORAL), (INTRAVENOUS), (10 MG, 10MG THREE TIMES A DAY AS NEEDED ORAL)
     Dates: start: 20070101
  61. NEURONTIN [Concomitant]
  62. PROVENTIL HFA /00139501/ [Concomitant]
  63. NEXIUM [Concomitant]
  64. LEVETIRACETAM [Concomitant]
  65. PEPCID [Concomitant]
  66. TRIAMCINOLONE [Concomitant]
  67. ZANTAC [Concomitant]
  68. KEPPRA [Concomitant]

REACTIONS (16)
  - DYSGEUSIA [None]
  - MUSCLE SPASMS [None]
  - DYSPHAGIA [None]
  - BACK PAIN [None]
  - DIZZINESS [None]
  - CHEST PAIN [None]
  - ABDOMINAL PAIN [None]
  - LOSS OF CONSCIOUSNESS [None]
  - EMOTIONAL DISORDER [None]
  - CELLULITIS [None]
  - LEFT ATRIAL DILATATION [None]
  - PAIN IN EXTREMITY [None]
  - ECONOMIC PROBLEM [None]
  - URINARY INCONTINENCE [None]
  - FALL [None]
  - CONFUSIONAL STATE [None]
